FAERS Safety Report 5945940-7 (Version None)
Quarter: 2008Q4

REPORT INFORMATION
  Report Type: 
  Country: None (occurrence: None)
  Receive Date: 20081110
  Receipt Date: 20081106
  Transmission Date: 20090506
  Serious: Yes (Hospitalization)
  Sender: FDA-Public Use
  Company Number: IT-BRISTOL-MYERS SQUIBB COMPANY-14398176

PATIENT
  Age: 46 Year
  Sex: Female

DRUGS (9)
  1. REYATAZ [Suspect]
     Indication: HIV INFECTION
     Route: 048
  2. REYATAZ [Suspect]
     Indication: HEPATITIS C VIRUS TEST
     Route: 048
  3. REYATAZ [Suspect]
     Indication: HEPATIC CIRRHOSIS
     Route: 048
  4. RITONAVIR [Suspect]
     Indication: HIV INFECTION
     Route: 048
  5. RITONAVIR [Suspect]
     Indication: HEPATITIS C VIRUS TEST
     Route: 048
  6. RITONAVIR [Suspect]
     Indication: HEPATIC CIRRHOSIS
     Route: 048
  7. TRUVADA [Suspect]
     Indication: HIV INFECTION
     Route: 048
  8. TRUVADA [Suspect]
     Indication: HEPATITIS C VIRUS TEST
     Route: 048
  9. TRUVADA [Suspect]
     Indication: HEPATIC CIRRHOSIS
     Route: 048

REACTIONS (3)
  - FAT TISSUE INCREASED [None]
  - HYPERGLYCAEMIA [None]
  - WEIGHT INCREASED [None]
